FAERS Safety Report 8846944 (Version 1)
Quarter: 2012Q4

REPORT INFORMATION
  Report Type: 
  Country: GB (occurrence: GB)
  Receive Date: 20121018
  Receipt Date: 20121018
  Transmission Date: 20130627
  Serious: Yes (Other)
  Sender: FDA-Public Use
  Company Number: GB-PFIZER INC-2012177333

PATIENT
  Age: 70 Year
  Sex: Male
  Weight: 91 kg

DRUGS (4)
  1. CELEBREX [Suspect]
     Indication: PAIN IN EXTREMITY
     Dosage: 200mg, 1 DF, every morning for a year
     Route: 048
     Dates: start: 20110929
  2. CELEBREX [Suspect]
     Indication: PAIN IN EXTREMITY
  3. BETAHISTINE [Concomitant]
     Dosage: 160, UNK frequency
     Route: 048
     Dates: start: 2004
  4. BENDROFLUMETHIAZIDE [Concomitant]
     Dosage: 2.5, UNK frequency
     Route: 048
     Dates: start: 20120508, end: 20120701

REACTIONS (7)
  - Acute promyelocytic leukaemia [Not Recovered/Not Resolved]
  - Neutropenia [Not Recovered/Not Resolved]
  - Musculoskeletal stiffness [Unknown]
  - Oedema peripheral [Unknown]
  - Dizziness [Unknown]
  - Dyspnoea [Unknown]
  - Fatigue [Unknown]
